FAERS Safety Report 8109463-1 (Version None)
Quarter: 2012Q1

REPORT INFORMATION
  Report Type: 
  Country: None (occurrence: None)
  Receive Date: 20120202
  Receipt Date: 20120125
  Transmission Date: 20120608
  Serious: Yes (Hospitalization, Other)
  Sender: FDA-Public Use
  Company Number: US-ABBOTT-12P-163-0898543-00

PATIENT
  Sex: Female
  Weight: 68.1 kg

DRUGS (7)
  1. BENTYL [Concomitant]
     Indication: CROHN'S DISEASE
  2. UNKNOWN NARCOTICS [Concomitant]
     Indication: PAIN
  3. HUMIRA [Suspect]
     Indication: CROHN'S DISEASE
     Dates: start: 20080101
  4. DIPENTUM [Concomitant]
     Indication: CROHN'S DISEASE
  5. IMURAN [Concomitant]
     Indication: CROHN'S DISEASE
  6. VITAMIN B-12 [Concomitant]
     Indication: VITAMIN SUPPLEMENTATION
     Route: 030
  7. OMEPRAZOLE [Concomitant]
     Indication: CROHN'S DISEASE

REACTIONS (9)
  - HAEMOGLOBIN DECREASED [None]
  - DEHYDRATION [None]
  - VOMITING [None]
  - INTESTINAL OBSTRUCTION [None]
  - CROHN'S DISEASE [None]
  - NAUSEA [None]
  - DIARRHOEA [None]
  - ABDOMINAL PAIN [None]
  - HAEMATOCHEZIA [None]
